FAERS Safety Report 16345176 (Version 1)
Quarter: 2019Q2

REPORT INFORMATION
  Report Type: Other
  Country: US (occurrence: US)
  Receive Date: 20190523
  Receipt Date: 20190523
  Transmission Date: 20190711
  Serious: Yes (Life-Threatening)
  Sender: FDA-Public Use
  Company Number: US-STANDARD HOMEOPATHIC COMPANY-2067341

PATIENT
  Age: 83 Year
  Sex: Male

DRUGS (1)
  1. CALMS FORTE 4 KIDS [Suspect]
     Active Substance: HOMEOPATHICS
     Indication: INSOMNIA
     Route: 048
     Dates: start: 20190506, end: 20190510

REACTIONS (2)
  - Hemianaesthesia [Unknown]
  - Deafness unilateral [None]

NARRATIVE: CASE EVENT DATE: 20190506
